FAERS Safety Report 4869153-5 (Version None)
Quarter: 2005Q4

REPORT INFORMATION
  Report Type: 
  Country: None (occurrence: None)
  Receive Date: 20051230
  Receipt Date: 20051221
  Transmission Date: 20060501
  Serious: Yes (Hospitalization)
  Sender: FDA-Public Use
  Company Number: US-JNJFOC-20051205216

PATIENT
  Sex: Male

DRUGS (5)
  1. REMICADE [Suspect]
     Route: 042
  2. REMICADE [Suspect]
     Indication: RHEUMATOID ARTHRITIS
     Dosage: SEVERAL YEARS
     Route: 042
  3. METHOTREXATE [Concomitant]
  4. ARAVA [Concomitant]
  5. PREDNISONE 50MG TAB [Concomitant]

REACTIONS (1)
  - PNEUMONITIS CRYPTOCOCCAL [None]
